FAERS Safety Report 9914041 (Version 2)
Quarter: 2014Q1

REPORT INFORMATION
  Report Type: Report from Study
  Country: JP (occurrence: JP)
  Receive Date: 20140220
  Receipt Date: 20140327
  Transmission Date: 20141002
  Serious: Yes (Other)
  Sender: FDA-Public Use
  Company Number: JP-GLAXOSMITHKLINE-B0970201A

PATIENT
  Age: 37 Year
  Sex: Male
  Weight: 107 kg

DRUGS (10)
  1. LAMICTAL [Suspect]
     Indication: BIPOLAR I DISORDER
     Dosage: 25MG PER DAY
     Route: 048
     Dates: start: 20121010
  2. LAMICTAL [Suspect]
     Indication: BIPOLAR I DISORDER
     Dosage: 25MG TWICE PER DAY
     Route: 048
     Dates: start: 20121025
  3. LAMICTAL [Suspect]
     Indication: BIPOLAR I DISORDER
     Dosage: 37.5MG TWICE PER DAY
     Route: 048
     Dates: start: 20130122
  4. LAMICTAL [Suspect]
     Indication: BIPOLAR I DISORDER
     Dosage: 50MG TWICE PER DAY
     Route: 048
     Dates: start: 20130528
  5. LAMICTAL [Suspect]
     Indication: BIPOLAR I DISORDER
     Dosage: 100MG PER DAY
     Route: 048
     Dates: start: 20130611
  6. LIMAS [Suspect]
     Indication: DEPRESSION
     Route: 048
  7. ABILIFY [Concomitant]
     Indication: BIPOLAR I DISORDER
     Route: 048
     Dates: end: 20130415
  8. ABILIFY [Concomitant]
     Indication: DEPRESSION
     Route: 048
     Dates: start: 20130416, end: 20131029
  9. ZYLORIC [Concomitant]
     Dosage: 100MG TWICE PER DAY
     Route: 048
  10. LOCHOL [Concomitant]
     Dosage: 30MG PER DAY
     Route: 048

REACTIONS (1)
  - Renal impairment [Not Recovered/Not Resolved]
